FAERS Safety Report 10413123 (Version 2)
Quarter: 2014Q4

REPORT INFORMATION
  Report Type: Report from Study
  Country: AU (occurrence: AU)
  Receive Date: 20140827
  Receipt Date: 20141022
  Transmission Date: 20150528
  Serious: Yes (Hospitalization, Other)
  Sender: FDA-Public Use
  Company Number: AU-BRISTOL-MYERS SQUIBB COMPANY-21340039

PATIENT
  Age: 67 Year
  Sex: Female

DRUGS (9)
  1. OSTELIN [Concomitant]
     Active Substance: ERGOCALCIFEROL
  2. ORENCIA [Suspect]
     Active Substance: ABATACEPT
     Indication: RHEUMATOID ARTHRITIS
     Route: 042
     Dates: start: 20140715
  3. FOSAMAX [Concomitant]
     Active Substance: ALENDRONATE SODIUM
  4. NEXIUM [Concomitant]
     Active Substance: ESOMEPRAZOLE MAGNESIUM
  5. PANADOL [Concomitant]
     Active Substance: ACETAMINOPHEN
     Dosage: OSTEO
  6. PREDNISOLONE. [Concomitant]
     Active Substance: PREDNISOLONE
  7. ENDEP [Concomitant]
     Active Substance: AMITRIPTYLINE HYDROCHLORIDE
  8. MOBIC [Concomitant]
     Active Substance: MELOXICAM
  9. METOPROLOL [Concomitant]
     Active Substance: METOPROLOL

REACTIONS (4)
  - Skin lesion [Not Recovered/Not Resolved]
  - Lower respiratory tract infection [Not Recovered/Not Resolved]
  - Pulmonary fibrosis [Not Recovered/Not Resolved]
  - Respiratory distress [Not Recovered/Not Resolved]

NARRATIVE: CASE EVENT DATE: 2014
